FAERS Safety Report 25817764 (Version 1)
Quarter: 2025Q3

REPORT INFORMATION
  Report Type: Spontaneous
  Country: US (occurrence: US)
  Receive Date: 20250918
  Receipt Date: 20250918
  Transmission Date: 20251021
  Serious: Yes (Other)
  Sender: AMGEN
  Company Number: US-AMGEN-USASP2025182231

PATIENT

DRUGS (10)
  1. PREDNISONE [Suspect]
     Active Substance: PREDNISONE
     Indication: Duchenne muscular dystrophy
     Dosage: 1-2 MG KG DAILY FOR THE FIRST 2-4 WEEKS
     Route: 048
  2. PREDNISONE [Suspect]
     Active Substance: PREDNISONE
     Dosage: 1 MILLIGRAM/KILOGRAM, QD (TAPERING TO 1.0 MG KG)
     Route: 048
  3. PREDNISONE [Suspect]
     Active Substance: PREDNISONE
     Dosage: 0.75 MILLIGRAM/KILOGRAM, QD
     Route: 048
  4. PREDNISONE [Suspect]
     Active Substance: PREDNISONE
     Dosage: 0.50 MILLIGRAM/KILOGRAM, QD
     Route: 048
  5. FORDADISTROGENE MOVAPARVOVEC [Suspect]
     Active Substance: FORDADISTROGENE MOVAPARVOVEC
     Indication: Duchenne muscular dystrophy
     Route: 065
  6. METHYLPREDNISOLONE [Concomitant]
     Active Substance: METHYLPREDNISOLONE
     Indication: Duchenne muscular dystrophy
     Route: 065
  7. PREDNISOLONE [Concomitant]
     Active Substance: PREDNISOLONE
     Indication: Duchenne muscular dystrophy
     Dosage: 1-2 MG/ KG FOR THE FIRST 2-4 WEEKS
     Route: 048
  8. PREDNISOLONE [Concomitant]
     Active Substance: PREDNISOLONE
     Dosage: 1.0 MILLIGRAM/KILOGRAM, QD
     Route: 048
  9. PREDNISOLONE [Concomitant]
     Active Substance: PREDNISOLONE
     Dosage: 0.75 MILLIGRAM/KILOGRAM, QD
     Route: 048
  10. PREDNISOLONE [Concomitant]
     Active Substance: PREDNISOLONE
     Dosage: 0.50 MILLIGRAM/KILOGRAM, QD
     Route: 048

REACTIONS (19)
  - Thrombocytopenia [Unknown]
  - Liver injury [Unknown]
  - Thrombotic microangiopathy [Unknown]
  - Acute kidney injury [Unknown]
  - Haemolysis [Unknown]
  - Inguinal hernia [Unknown]
  - Vomiting [Unknown]
  - Glutamate dehydrogenase increased [Unknown]
  - Gamma-glutamyltransferase increased [Unknown]
  - Nausea [Unknown]
  - Pyrexia [Unknown]
  - Decreased appetite [Unknown]
  - Fatigue [Unknown]
  - Headache [Unknown]
  - Infusion site reaction [Unknown]
  - Dehydration [Unknown]
  - Platelet count decreased [Unknown]
  - Blood creatinine abnormal [Unknown]
  - Off label use [Unknown]
